FAERS Safety Report 6614369-0 (Version None)
Quarter: 2010Q1

REPORT INFORMATION
  Report Type: 
  Country: None (occurrence: None)
  Receive Date: 20100304
  Receipt Date: 20100221
  Transmission Date: 20100710
  Serious: Yes (Hospitalization)
  Sender: FDA-Public Use
  Company Number: AU-MYLANLABS-2010S1001222

PATIENT
  Age: 67 Year
  Sex: Female
  Weight: 85 kg

DRUGS (17)
  1. BLINDED STUDY MEDICATION [Suspect]
     Indication: RHEUMATOID ARTHRITIS
     Route: 048
     Dates: start: 20090925
  2. BLINDED: PLACEBO [Suspect]
     Indication: RHEUMATOID ARTHRITIS
     Route: 048
     Dates: start: 20090925
  3. BLINDED STUDY MEDICATION [Suspect]
     Route: 048
     Dates: start: 20090925
  4. BLINDED STUDY MEDICATION [Suspect]
     Route: 048
     Dates: start: 20090925
  5. METFORMIN HCL [Suspect]
     Indication: TYPE 2 DIABETES MELLITUS
     Route: 048
     Dates: start: 20020101
  6. METHOBLASTIN /00113801/ [Suspect]
     Indication: RHEUMATOID ARTHRITIS
     Route: 048
     Dates: start: 20010101
  7. GLICLAZIDE [Suspect]
     Indication: TYPE 2 DIABETES MELLITUS
     Route: 048
     Dates: start: 20020101
  8. ENDEP [Suspect]
     Indication: FIBROMYALGIA
     Route: 048
     Dates: start: 20020101, end: 20100102
  9. FOLIC ACID [Concomitant]
     Dates: start: 20010101
  10. B12-VITAMIIN [Concomitant]
     Dates: start: 20010101
  11. PARIET [Concomitant]
     Dates: start: 20091203
  12. PREDNISOLONE [Concomitant]
     Dates: start: 20010101
  13. LEVOTHYROXINE SODIUM [Concomitant]
     Dates: start: 20060101
  14. FISH OIL [Concomitant]
     Dates: start: 20060101
  15. FERROUS SULFATE TAB [Concomitant]
     Dates: start: 20090801
  16. MULTI-VITAMINS [Concomitant]
     Dates: start: 20080101
  17. LIPITOR [Concomitant]
     Dates: start: 20060101

REACTIONS (2)
  - BILE DUCT STONE [None]
  - PANCREATITIS [None]
